FAERS Safety Report 4660998-3 (Version None)
Quarter: 2005Q2

REPORT INFORMATION
  Report Type: 
  Country: None (occurrence: None)
  Receive Date: 20050511
  Receipt Date: 20050428
  Transmission Date: 20051028
  Serious: Yes (Other)
  Sender: FDA-Public Use
  Company Number: 2005063372

PATIENT
  Sex: Male

DRUGS (6)
  1. DILANTIN KAPSEAL [Suspect]
     Indication: CONVULSION
     Dosage: 1 IN 1 D, ORAL
     Route: 048
  2. LEVETIRACETAM [Suspect]
     Indication: CONVULSION
  3. VALPROATE SODIUM [Suspect]
     Indication: CONVULSION
  4. ZONISAMIDE (ZONISAMIDE) [Concomitant]
  5. ATENOLOL [Concomitant]
  6. ESCITALOPRAM OXALATE [Concomitant]

REACTIONS (5)
  - ANTICONVULSANT DRUG LEVEL ABOVE THERAPEUTIC [None]
  - DIZZINESS [None]
  - GAIT DISTURBANCE [None]
  - NYSTAGMUS [None]
  - PHARMACEUTICAL PRODUCT COMPLAINT [None]
